FAERS Safety Report 6758771-5 (Version None)
Quarter: 2010Q2

REPORT INFORMATION
  Report Type: 
  Country: None (occurrence: None)
  Receive Date: 20100524
  Receipt Date: 20100209
  Transmission Date: 20101027
  Serious: No
  Sender: FDA-Public Use
  Company Number: 006544

PATIENT
  Sex: Male
  Weight: 78 kg

DRUGS (6)
  1. CIMZIA [Suspect]
     Indication: CROHN'S DISEASE
     Dosage: (ORDERED DOSE 400 MG, EVERY 2 WEEKS SUBCUTANEOUS)
     Route: 058
     Dates: start: 20100208
  2. CIPRO [Concomitant]
  3. FLOMAX /01280302/ [Concomitant]
  4. NORCO [Concomitant]
  5. LUNESTA [Concomitant]
  6. AMBIEN [Concomitant]

REACTIONS (5)
  - ABDOMINAL PAIN [None]
  - DRUG ADMINISTRATION ERROR [None]
  - FATIGUE [None]
  - MALAISE [None]
  - OVERDOSE [None]
